FAERS Safety Report 13546256 (Version 2)
Quarter: 2018Q1

REPORT INFORMATION
  Report Type: Spontaneous
  Country: US (occurrence: US)
  Receive Date: 20170515
  Receipt Date: 20180111
  Transmission Date: 20180508
  Serious: Yes (Other)
  Sender: FDA-Public Use
  Company Number: US-SUNOVION-2017SUN001858

PATIENT
  Age: 19 Year
  Sex: Female
  Weight: 88.44 kg

DRUGS (5)
  1. BENAZINE [Concomitant]
     Dosage: UNK, QD
     Route: 048
  2. ABILIFY [Concomitant]
     Active Substance: ARIPIPRAZOLE
  3. LATUDA [Suspect]
     Active Substance: LURASIDONE HYDROCHLORIDE
     Dosage: 80 MG, BID
     Route: 048
  4. LORAZEPAM. [Concomitant]
     Active Substance: LORAZEPAM
     Dosage: UNK, QD
     Route: 048
  5. LATUDA [Suspect]
     Active Substance: LURASIDONE HYDROCHLORIDE
     Indication: BIPOLAR DISORDER
     Dosage: 40 MG, QD
     Route: 048

REACTIONS (9)
  - Drug dose omission [Unknown]
  - Withdrawal syndrome [Unknown]
  - Depression [Unknown]
  - Dry mouth [Unknown]
  - Panic attack [Unknown]
  - Suicidal ideation [Unknown]
  - Anxiety [Unknown]
  - Tachyphrenia [Unknown]
  - Insomnia [Unknown]
